FAERS Safety Report 10733062 (Version 1)
Quarter: 2015Q1

REPORT INFORMATION
  Report Type: Spontaneous
  Country: GB (occurrence: GB)
  Receive Date: 20150123
  Receipt Date: 20150123
  Transmission Date: 20150721
  Serious: Yes (Disabling, Other)
  Sender: FDA-Public Use
  Company Number: GB-ACTAVIS-2015-00468

PATIENT
  Age: 61 Year
  Sex: Male
  Weight: 90.9 kg

DRUGS (1)
  1. DOCETAXEL (UNKNOWN) [Suspect]
     Active Substance: DOCETAXEL
     Indication: PROSTATE CANCER
     Dosage: 120 MG, CYCLICAL, CYCLE 8
     Route: 042
     Dates: start: 20141211

REACTIONS (2)
  - Neutropenic sepsis [Recovering/Resolving]
  - Pyrexia [Recovering/Resolving]
